FAERS Safety Report 15820870 (Version 2)
Quarter: 2019Q2

REPORT INFORMATION
  Report Type: Spontaneous
  Country: US (occurrence: US)
  Receive Date: 20190114
  Receipt Date: 20190606
  Transmission Date: 20190711
  Serious: Yes (Death, Hospitalization, Other)
  Sender: FDA-Public Use
  Company Number: US-009507513-1901USA004060

PATIENT
  Age: 54 Year
  Sex: Female

DRUGS (5)
  1. ALIMTA [Suspect]
     Active Substance: PEMETREXED DISODIUM
     Indication: LUNG CARCINOMA CELL TYPE UNSPECIFIED STAGE IV
     Dosage: 400 MILLIGRAM (500 MG VIAL)
     Route: 042
     Dates: end: 20181227
  2. KEYTRUDA [Suspect]
     Active Substance: PEMBROLIZUMAB
     Dosage: UNK
     Dates: start: 20181129
  3. KEYTRUDA [Suspect]
     Active Substance: PEMBROLIZUMAB
     Dosage: 400 MG (500 MG VIA) (ALSO REPORTED AS CYCLE 2, 50% DOSE REDUCTION)
     Dates: start: 20181227
  4. CARBOPLATIN. [Suspect]
     Active Substance: CARBOPLATIN
     Dosage: UNK
     Dates: start: 20181129
  5. CARBOPLATIN. [Suspect]
     Active Substance: CARBOPLATIN
     Dosage: CYCLE 2, 50% DOSE REDUCTION
     Dates: start: 20181227

REACTIONS (5)
  - Cardiac arrest [Fatal]
  - Asthenia [Unknown]
  - Anaemia [Unknown]
  - Epistaxis [Recovered/Resolved]
  - Thrombocytopenia [Unknown]

NARRATIVE: CASE EVENT DATE: 2018
